FAERS Safety Report 7656076-1 (Version None)
Quarter: 2011Q3

REPORT INFORMATION
  Report Type: 
  Country: None (occurrence: None)
  Receive Date: 20110804
  Receipt Date: 20110728
  Transmission Date: 20111222
  Serious: Yes (Hospitalization)
  Sender: FDA-Public Use
  Company Number: SE-ROCHE-792894

PATIENT
  Age: 62 Year
  Sex: Male

DRUGS (6)
  1. LARIAM [Suspect]
     Dosage: LARIAM TABL 250 MG
     Route: 048
     Dates: start: 20101101
  2. ENTOCORT EC [Concomitant]
     Dosage: ENTOCORT PROLONGED-RELEASE CAPSULE, HARD
  3. KALCIPOS-D [Concomitant]
     Dosage: KALCIPOS-D CHEWABLE TABL
  4. BEHEPAN [Concomitant]
  5. BRICANYL [Concomitant]
  6. PULMICORT [Concomitant]

REACTIONS (1)
  - ANAEMIA [None]
